FAERS Safety Report 6202870-3 (Version None)
Quarter: 2009Q2

REPORT INFORMATION
  Report Type: 
  Country: None (occurrence: None)
  Receive Date: 20090520
  Receipt Date: 20090511
  Transmission Date: 20091009
  Serious: Yes (Hospitalization)
  Sender: FDA-Public Use
  Company Number: 09CZ001365

PATIENT
  Age: 15 Year
  Sex: Male
  Weight: 51 kg

DRUGS (3)
  1. MESALAMINE [Suspect]
     Indication: PROCTOCOLITIS
     Dosage: 3 G, QD, RECTAL
     Route: 054
  2. AZATHIOPRINE [Concomitant]
  3. PREDNISOLONE ACETATE [Concomitant]

REACTIONS (8)
  - ANAEMIA [None]
  - ERYTHEMA NODOSUM [None]
  - LEUKOCYTURIA [None]
  - OEDEMA [None]
  - PALLOR [None]
  - PYREXIA [None]
  - TUBULOINTERSTITIAL NEPHRITIS [None]
  - WEIGHT DECREASED [None]
